FAERS Safety Report 18127513 (Version 2)
Quarter: 2020Q3

REPORT INFORMATION
  Report Type: Spontaneous
  Country: US (occurrence: US)
  Receive Date: 20200810
  Receipt Date: 20200824
  Transmission Date: 20201103
  Serious: Yes (Other)
  Sender: FDA-Public Use
  Company Number: US-009507513-2008USA000824

PATIENT
  Sex: Female

DRUGS (25)
  1. VITAMINS (UNSPECIFIED) [Concomitant]
     Active Substance: VITAMINS
     Route: 048
  2. XELJANZ [Concomitant]
     Active Substance: TOFACITINIB CITRATE
     Indication: RHEUMATOID ARTHRITIS
     Dosage: 11 MG DAILY
     Route: 048
     Dates: start: 201904, end: 201904
  3. VITAMIN E [Concomitant]
     Active Substance: .ALPHA.-TOCOPHEROL
     Dosage: 400 UNITS BY MOUTH DAILY
     Route: 048
  4. PROVENTIL [Suspect]
     Active Substance: ALBUTEROL
     Indication: DYSPNOEA
     Dosage: 3 ML EVERY 6 HOURS AS NEEDED
     Route: 055
     Dates: start: 20171013
  5. NEURONTIN [Concomitant]
     Active Substance: GABAPENTIN
     Dosage: 1.5 TABS (900 MG) BY MOUTH 2 TIMES DAILY
     Route: 048
  6. HYDROCHLOROTHIAZIDE. [Concomitant]
     Active Substance: HYDROCHLOROTHIAZIDE
     Dosage: 1 TABLET BY MOUTH EVERY DAY
     Route: 048
  7. MOBIC [Concomitant]
     Active Substance: MELOXICAM
     Dosage: 15 MG BY MOUTH DAILY
     Route: 048
  8. GLUCOPHAGE [Concomitant]
     Active Substance: METFORMIN HYDROCHLORIDE
     Dosage: 1000 MILLIGRAM BY MOUTH 2 TIMES DAILY WITH MEALS
     Route: 048
  9. TRELEGY ELLIPTA [Concomitant]
     Active Substance: FLUTICASONE FUROATE\UMECLIDINIUM BROMIDE\VILANTEROL TRIFENATATE
     Dosage: 100?62.5?25 MCG/1 PUFF BY MOUTH DAILY FOR 360 DAYS
  10. PROVENTIL [Concomitant]
     Active Substance: ALBUTEROL
     Indication: DYSPNOEA
     Dosage: 2 PUFFS EVERY 6 HOURS AS NEEDED
     Route: 055
  11. ZOCOR [Concomitant]
     Active Substance: SIMVASTATIN
     Dosage: 1 TABLET BY MOUTH ONCE DAILY LATE IN THE DAY
     Route: 048
  12. ZOFRAN [Concomitant]
     Active Substance: ONDANSETRON HYDROCHLORIDE
     Indication: NAUSEA
     Dosage: 1 TABLET BY MOUTH EVERY 6 HOURS AS NEEDED
     Route: 048
  13. DELTASONE [Concomitant]
     Active Substance: PREDNISONE
     Dosage: 1?2 TABLETS BY MOUTH EVERY DAY
     Route: 048
  14. TURMERIC [Concomitant]
     Active Substance: HERBALS\TURMERIC
     Dosage: 500 MILLIGRAM, QD
     Route: 048
  15. CLARITIN [Concomitant]
     Active Substance: LORATADINE
     Dosage: T10 MG BY MOUTH DAILY AT BEDTIME
     Route: 048
  16. COZAAR [Concomitant]
     Active Substance: LOSARTAN POTASSIUM
     Dosage: 1 TABLET BY MOUTH EVERY DAY
     Route: 048
  17. ASPIRIN. [Concomitant]
     Active Substance: ASPIRIN
     Dosage: 81 MG BY MOUTH DAILY
     Route: 048
  18. NARCAN [Concomitant]
     Active Substance: NALOXONE HYDROCHLORIDE
     Dosage: 1 SPRAY IN EACH NOSTRIL EVERY 5 MINUTES AS NEEDED (OVERDOSE)
     Route: 045
  19. MYSOLINE [Concomitant]
     Active Substance: PRIMIDONE
     Dosage: 1 TAB (50 MG) BY MOUTH DAILY AT BEDTIME
     Route: 048
  20. XELJANZ [Concomitant]
     Active Substance: TOFACITINIB CITRATE
     Dosage: 11 MG DAILY
     Route: 048
     Dates: start: 2019
  21. VITAMIN D (UNSPECIFIED) [Concomitant]
     Active Substance: VITAMIN D NOS
     Dosage: 1000 UNITS BY MOUTH DAILY
     Route: 048
  22. CIPRO [Concomitant]
     Active Substance: CIPROFLOXACIN HYDROCHLORIDE
     Dosage: 1 TAB (250 MG) BY MOUTH 2 TIMES DAILY FOR 3 DAYS
     Route: 048
  23. PEPCID [Concomitant]
     Active Substance: FAMOTIDINE
     Dosage: 1 TABLET BY MOUTH TWICE A DAY
     Route: 048
  24. LACTOBAC POWDER [Concomitant]
     Dosage: UNK
     Route: 048
  25. VICTOZA [Concomitant]
     Active Substance: LIRAGLUTIDE
     Dosage: 0.6 MG BY SUBCUTANEOUS INJECTION DAILY
     Route: 058

REACTIONS (11)
  - Bursitis infective [Recovered/Resolved]
  - Infection [Unknown]
  - Arthralgia [Unknown]
  - Neck pain [Unknown]
  - Headache [Unknown]
  - Pain [Unknown]
  - Rash [Unknown]
  - Bursitis [Recovered/Resolved]
  - Joint swelling [Unknown]
  - Surgery [Unknown]
  - Rash [Unknown]

NARRATIVE: CASE EVENT DATE: 20171019
